FAERS Safety Report 11679748 (Version 2)
Quarter: 2015Q4

REPORT INFORMATION
  Report Type: Spontaneous
  Country: US (occurrence: US)
  Receive Date: 20151027
  Receipt Date: 20151104
  Transmission Date: 20160304
  Serious: No
  Sender: FDA-Public Use
  Company Number: US-ELI_LILLY_AND_COMPANY-US201008004175

PATIENT
  Age: 72 Year
  Sex: Female

DRUGS (22)
  1. FORTEO [Suspect]
     Active Substance: TERIPARATIDE
     Dosage: 20 UG, DAILY (1/D)
  2. OMEGA-3 FATTY ACIDS [Concomitant]
     Active Substance: OMEGA-3 FATTY ACIDS
     Dosage: 1 U, 2/D
     Route: 048
  3. FORTEO [Suspect]
     Active Substance: TERIPARATIDE
     Dosage: 20 UG, DAILY (1/D)
     Route: 058
  4. LISINOPRIL. [Concomitant]
     Active Substance: LISINOPRIL
     Indication: BLOOD PRESSURE MEASUREMENT
     Dosage: UNK, 2/D
  5. NEURONTIN [Concomitant]
     Active Substance: GABAPENTIN
     Dosage: 2 U, UNK
     Route: 048
  6. FORTEO [Suspect]
     Active Substance: TERIPARATIDE
     Indication: OSTEOPOROSIS
     Dosage: 20 UG, DAILY (1/D)
     Dates: start: 20100624
  7. METOPROLOL [Concomitant]
     Active Substance: METOPROLOL
     Indication: CARDIAC DISORDER
  8. CENTRUM SILVER [Concomitant]
     Active Substance: MINERALS\VITAMINS
     Dosage: 1 U, QOD
     Route: 048
  9. PREVACID [Concomitant]
     Active Substance: LANSOPRAZOLE
     Dosage: UNK, 2/D
     Route: 048
  10. QUININE SULFATE. [Concomitant]
     Active Substance: QUININE SULFATE
     Dosage: 1 U, QOD
     Route: 048
  11. FORTEO [Suspect]
     Active Substance: TERIPARATIDE
     Dosage: 20 UG, DAILY (1/D)
     Dates: start: 20110110
  12. SYNTHROID [Concomitant]
     Active Substance: LEVOTHYROXINE SODIUM
     Indication: THYROID DISORDER
     Dosage: UNK, QOD
     Route: 048
  13. CALCIUM [Concomitant]
     Active Substance: CALCIUM
     Dosage: 1200 MG, DAILY (1/D)
  14. CALCIUM CARBONATE. [Concomitant]
     Active Substance: CALCIUM CARBONATE
     Dosage: 1 U, QOD
     Route: 048
  15. VITAMIN C [Concomitant]
     Active Substance: ASCORBIC ACID
     Dosage: 1 U, QOD
     Route: 048
  16. ASPIRIN. [Concomitant]
     Active Substance: ASPIRIN
     Dosage: 1 U, QOD
     Route: 048
  17. METOPROLOL SUCCINATE. [Concomitant]
     Active Substance: METOPROLOL SUCCINATE
     Dosage: 1 U, 2/D
     Route: 048
  18. PRINIVIL [Concomitant]
     Active Substance: LISINOPRIL
     Dosage: 1 U, 2/D
     Route: 048
  19. ATROVENT [Concomitant]
     Active Substance: IPRATROPIUM BROMIDE
  20. TYLENOL [Concomitant]
     Active Substance: ACETAMINOPHEN
     Dosage: 1 U, QOD
     Route: 048
  21. FORTEO [Suspect]
     Active Substance: TERIPARATIDE
     Dosage: 20 UG, DAILY (1/D)
  22. VITAMIN D3 [Concomitant]
     Active Substance: CHOLECALCIFEROL
     Dosage: 1 U, QOD
     Route: 048

REACTIONS (36)
  - Malaise [Unknown]
  - Neck pain [Unknown]
  - Hearing impaired [Unknown]
  - Constipation [Unknown]
  - Fatigue [Unknown]
  - Hypoaesthesia [Unknown]
  - Tinnitus [Unknown]
  - Drug dose omission [Unknown]
  - Nausea [Not Recovered/Not Resolved]
  - Muscular weakness [Not Recovered/Not Resolved]
  - Rhinorrhoea [Unknown]
  - Sleep disorder [Not Recovered/Not Resolved]
  - Pain [Not Recovered/Not Resolved]
  - Intervertebral disc degeneration [Unknown]
  - Limb deformity [Unknown]
  - Somnolence [Not Recovered/Not Resolved]
  - Tremor [Unknown]
  - Dry mouth [Unknown]
  - Headache [Recovered/Resolved]
  - Injection site pain [Unknown]
  - Vertebral foraminal stenosis [Recovered/Resolved]
  - Nerve injury [Unknown]
  - Immune system disorder [Unknown]
  - Speech disorder [Unknown]
  - Deafness [Not Recovered/Not Resolved]
  - Intentional product misuse [Unknown]
  - Diarrhoea [Unknown]
  - Muscle spasms [Not Recovered/Not Resolved]
  - Radicular pain [Unknown]
  - Bone pain [Unknown]
  - Arthralgia [Unknown]
  - Joint swelling [Unknown]
  - Myalgia [Recovering/Resolving]
  - Vomiting [Recovered/Resolved]
  - Dizziness [Unknown]
  - Headache [Unknown]

NARRATIVE: CASE EVENT DATE: 201012
